FAERS Safety Report 5950018-2 (Version None)
Quarter: 2008Q4

REPORT INFORMATION
  Report Type: 
  Country: None (occurrence: None)
  Receive Date: 20081111
  Receipt Date: 20080602
  Transmission Date: 20090506
  Serious: No
  Sender: FDA-Public Use
  Company Number: US-BRISTOL-MYERS SQUIBB COMPANY-14104202

PATIENT
  Age: 48 Year
  Sex: Female

DRUGS (2)
  1. SUSTIVA [Suspect]
     Dosage: 1 DOSAGE FORM = 1 CAPSULES
  2. TRUVADA [Suspect]

REACTIONS (2)
  - DRUG ADMINISTRATION ERROR [None]
  - OESOPHAGITIS [None]
